FAERS Safety Report 21228794 (Version 1)
Quarter: 2022Q3

REPORT INFORMATION
  Report Type: Spontaneous
  Country: US (occurrence: US)
  Receive Date: 20220818
  Receipt Date: 20220818
  Transmission Date: 20221027
  Serious: No
  Sender: FDA-Public Use
  Company Number: US-PFIZER INC-PV202200042607

PATIENT
  Age: 87 Year
  Sex: Male

DRUGS (2)
  1. EUCRISA [Suspect]
     Active Substance: CRISABOROLE
     Indication: Dermatitis atopic
     Dosage: UNK, 2X/DAY
  2. AQUAPHOR (XIPAMIDE) [Suspect]
     Active Substance: XIPAMIDE
     Dosage: UNK

REACTIONS (1)
  - Burning sensation [Unknown]
